FAERS Safety Report 8375984-X (Version None)
Quarter: 2012Q2

REPORT INFORMATION
  Report Type: 
  Country: None (occurrence: None)
  Receive Date: 20120522
  Receipt Date: 20120511
  Transmission Date: 20120825
  Serious: Yes (Hospitalization, Disabling)
  Sender: FDA-Public Use
  Company Number: GB-MPIJNJ-2012-03400

PATIENT

DRUGS (3)
  1. DEXAMETHASONE [Concomitant]
  2. VELCADE [Suspect]
     Indication: MULTIPLE MYELOMA
     Dosage: 1.5 MG/M2, UNK
     Route: 065
     Dates: start: 20120401
  3. ZOLEDRONIC ACID [Concomitant]
     Indication: PROPHYLAXIS

REACTIONS (3)
  - MUSCULAR WEAKNESS [None]
  - HYPONATRAEMIA [None]
  - FATIGUE [None]
